FAERS Safety Report 17881384 (Version 2)
Quarter: 2020Q2

REPORT INFORMATION
  Report Type: Spontaneous
  Country: US (occurrence: US)
  Receive Date: 20200610
  Receipt Date: 20200624
  Transmission Date: 20200714
  Serious: Yes (Hospitalization)
  Sender: FDA-Public Use
  Company Number: US-INDIVIOR US-INDV-125140-2020

PATIENT
  Sex: Male

DRUGS (4)
  1. BUPRENORPHINE/NALOXONE [Suspect]
     Active Substance: BUPRENORPHINE\NALOXONE
     Dosage: UNK
     Route: 065
     Dates: start: 201701, end: 201712
  2. METHADONE [Suspect]
     Active Substance: METHADONE HYDROCHLORIDE
     Indication: DRUG USE DISORDER
     Dosage: UNK
     Route: 065
  3. BUPRENORPHINE/NALOXONE [Suspect]
     Active Substance: BUPRENORPHINE\NALOXONE
     Indication: DRUG USE DISORDER
     Dosage: UNK
     Route: 065
     Dates: start: 2015, end: 2016
  4. CEFTAROLINE [Suspect]
     Active Substance: CEFTAROLINE
     Indication: STAPHYLOCOCCAL INFECTION
     Dosage: UNK
     Route: 065

REACTIONS (14)
  - Bacillus bacteraemia [Unknown]
  - Cellulitis [Unknown]
  - Staphylococcal infection [Unknown]
  - Drug dependence [Unknown]
  - Abscess limb [Unknown]
  - Back pain [Unknown]
  - Streptococcal bacteraemia [Unknown]
  - Tenosynovitis [Unknown]
  - Osteomyelitis [Unknown]
  - Staphylococcal bacteraemia [Unknown]
  - Staphylococcal infection [Unknown]
  - Overdose [Unknown]
  - Osteomyelitis bacterial [Unknown]
  - Drug abuse [Recovered/Resolved]

NARRATIVE: CASE EVENT DATE: 2015
